FAERS Safety Report 15761381 (Version 1)
Quarter: 2018Q4

REPORT INFORMATION
  Report Type: Spontaneous
  Country: US (occurrence: US)
  Receive Date: 20181226
  Receipt Date: 20181226
  Transmission Date: 20190205
  Serious: Yes (Other)
  Sender: FDA-Public Use
  Company Number: None

PATIENT
  Age: 75 Year
  Sex: Female
  Weight: 71.1 kg

DRUGS (14)
  1. KLOR-CON [Concomitant]
     Active Substance: POTASSIUM CHLORIDE
  2. MONTELUKAST SODIUM. [Concomitant]
     Active Substance: MONTELUKAST SODIUM
  3. VALSARTAN AND HYDROCHLOROTHIAZIDE [Concomitant]
     Active Substance: HYDROCHLOROTHIAZIDE\VALSARTAN
  4. PROVENTIL HFA [Concomitant]
     Active Substance: ALBUTEROL SULFATE
  5. FEXOFENIDINE [Concomitant]
  6. IBUPROFEN. [Concomitant]
     Active Substance: IBUPROFEN
  7. ATORVASTATIN [Concomitant]
     Active Substance: ATORVASTATIN
  8. LATANOPROST. [Concomitant]
     Active Substance: LATANOPROST
  9. VITAMIN D3 [Concomitant]
     Active Substance: CHOLECALCIFEROL
  10. TYLENOL [Concomitant]
     Active Substance: ACETAMINOPHEN
  11. ALENDRONATE SODIUM. [Concomitant]
     Active Substance: ALENDRONATE SODIUM
  12. MULTIVITAMIN [Concomitant]
     Active Substance: VITAMINS
  13. SIMBRINZA [Suspect]
     Active Substance: BRIMONIDINE TARTRATE\BRINZOLAMIDE
     Indication: GLAUCOMA
     Dosage: ?          QUANTITY:1 DROP(S);?
     Route: 047
     Dates: start: 20180819
  14. VERAPAMIL [Concomitant]
     Active Substance: VERAPAMIL HYDROCHLORIDE

REACTIONS (4)
  - Visual impairment [None]
  - Eye irritation [None]
  - Optic atrophy [None]
  - Vision blurred [None]

NARRATIVE: CASE EVENT DATE: 20181219
